FAERS Safety Report 7342846-6 (Version None)
Quarter: 2011Q1

REPORT INFORMATION
  Report Type: 
  Country: None (occurrence: None)
  Receive Date: 20110301
  Receipt Date: 20110217
  Transmission Date: 20110831
  Serious: Yes (Hospitalization)
  Sender: FDA-Public Use
  Company Number: TCI2011A01430

PATIENT

DRUGS (1)
  1. LAMPION PACK [Suspect]
     Indication: HELICOBACTER INFECTION
     Dosage: 1 CARD (0.5 CARD,2 IN 1 D) PER ORAL
     Route: 048
     Dates: start: 20110211, end: 20110216

REACTIONS (1)
  - HERPES ZOSTER [None]
